FAERS Safety Report 9336293 (Version 2)
Quarter: 2013Q3

REPORT INFORMATION
  Report Type: Spontaneous
  Country: US (occurrence: US)
  Receive Date: 20130607
  Receipt Date: 20130725
  Transmission Date: 20140515
  Serious: Yes (Other)
  Sender: FDA-Public Use
  Company Number: US-AMGEN-USASP2013039808

PATIENT
  Age: 71 Year
  Sex: Female
  Weight: 60.77 kg

DRUGS (9)
  1. PROLIA [Suspect]
     Indication: OSTEOPOROSIS POSTMENOPAUSAL
     Dosage: ONE TIME DOSE
     Dates: start: 20121126
  2. SIMVASTATIN [Concomitant]
     Dosage: 20 MG, QHS
     Route: 048
  3. HYDROXYCHLOROQUINE [Concomitant]
  4. CALCIUM WITH VITAMIN D             /00944201/ [Concomitant]
     Dosage: 600-200 MG
     Route: 048
  5. ASPIRIN [Concomitant]
     Dosage: 81 MG, QD
     Route: 048
  6. OMEPRAZOLE [Concomitant]
     Dosage: 20 MG, QOD
     Route: 048
  7. RAMIPRIL [Concomitant]
     Dosage: 2 BY MOUTH
     Route: 048
  8. OPTIVE [Concomitant]
     Dosage: 0.5-0.9 %
  9. FISH OIL [Concomitant]
     Dosage: 1000 MG, QD
     Route: 048

REACTIONS (14)
  - Abasia [Recovered/Resolved]
  - Mobility decreased [Recovered/Resolved]
  - Calcinosis [Recovered/Resolved]
  - Decreased appetite [Recovered/Resolved]
  - Joint stiffness [Recovered/Resolved]
  - Musculoskeletal stiffness [Not Recovered/Not Resolved]
  - Eating disorder [Recovered/Resolved]
  - Abdominal discomfort [Recovered/Resolved]
  - Weight increased [Recovered/Resolved]
  - Exercise tolerance decreased [Recovered/Resolved]
  - Increased appetite [Recovered/Resolved]
  - Bone pain [Recovered/Resolved]
  - Abdominal pain upper [Recovered/Resolved]
  - Pain in extremity [Recovered/Resolved]
